FAERS Safety Report 5599811-9 (Version None)
Quarter: 2008Q1

REPORT INFORMATION
  Report Type: 
  Country: None (occurrence: None)
  Receive Date: 20080123
  Receipt Date: 20080116
  Transmission Date: 20080703
  Serious: Yes (Other)
  Sender: FDA-Public Use
  Company Number: PHEH2007US11450

PATIENT
  Age: 78 Year
  Sex: Female
  Weight: 63.492 kg

DRUGS (4)
  1. TEKTURNA [Suspect]
     Indication: HYPERTENSION
     Dosage: 300 MG, QD
     Route: 048
     Dates: start: 20070725, end: 20070814
  2. ALDACTONE [Concomitant]
     Indication: NEPHROTIC SYNDROME
     Dosage: 25 MG, QD
     Dates: start: 20060916
  3. LASIX [Concomitant]
     Indication: NEPHROTIC SYNDROME
     Dosage: 40 MG, QD
     Dates: start: 20060626
  4. POTASSIUM CHLORIDE [Concomitant]
     Indication: ELECTROLYTE IMBALANCE
     Dosage: 20 MEQ, UNK
     Dates: start: 20070123, end: 20070914

REACTIONS (3)
  - BLOOD CREATININE INCREASED [None]
  - BLOOD PRESSURE SYSTOLIC INCREASED [None]
  - PROTEINURIA [None]
